FAERS Safety Report 9105493 (Version 3)
Quarter: 2018Q3

REPORT INFORMATION
  Report Type: Spontaneous
  Country: US (occurrence: US)
  Receive Date: 20130220
  Receipt Date: 20180820
  Transmission Date: 20181010
  Serious: Yes (Death, Other)
  Sender: FDA-Public Use
  Company Number: US-PURDUE-USA-2013-0099048

PATIENT
  Sex: Male

DRUGS (1)
  1. OXYCODONE HYDROCHLORIDE (SIMILAR TO NDA 22?272) [Suspect]
     Active Substance: OXYCODONE HYDROCHLORIDE
     Indication: PAIN
     Dosage: UNK
     Route: 048

REACTIONS (8)
  - Gun shot wound [Fatal]
  - Drug dependence [Unknown]
  - General physical health deterioration [Unknown]
  - Weight decreased [Unknown]
  - Mental impairment [Unknown]
  - Depression [Unknown]
  - Completed suicide [Fatal]
  - Anxiety [Unknown]

NARRATIVE: CASE EVENT DATE: 20110604
